FAERS Safety Report 7636792-8 (Version None)
Quarter: 2011Q3

REPORT INFORMATION
  Report Type: 
  Country: None (occurrence: None)
  Receive Date: 20110726
  Receipt Date: 20110721
  Transmission Date: 20111222
  Serious: Yes (Other)
  Sender: FDA-Public Use
  Company Number: US-AMGEN-USASP2011037369

PATIENT
  Sex: Male
  Weight: 66 kg

DRUGS (6)
  1. VINCRISTINE [Concomitant]
  2. CORTICOSTEROIDS [Concomitant]
  3. NPLATE [Suspect]
     Indication: IDIOPATHIC THROMBOCYTOPENIC PURPURA
     Dates: start: 20110126, end: 20110511
  4. RITUXIMAB [Concomitant]
  5. PREDNISONE [Concomitant]
  6. CYTOXAN [Concomitant]

REACTIONS (3)
  - LEUKOPENIA [None]
  - HISTOPLASMOSIS [None]
  - OEDEMA [None]
